FAERS Safety Report 14726118 (Version 1)
Quarter: 2018Q2

REPORT INFORMATION
  Report Type: Report from Study
  Country: BR (occurrence: BR)
  Receive Date: 20180406
  Receipt Date: 20180406
  Transmission Date: 20180711
  Serious: Yes (Other)
  Sender: FDA-Public Use
  Company Number: BR-ROCHE-2097466

PATIENT
  Sex: Female
  Weight: 80 kg

DRUGS (1)
  1. HERCEPTIN [Suspect]
     Active Substance: TRASTUZUMAB
     Indication: BREAST CANCER
     Dosage: EVERY 3 WEEKS
     Route: 065
     Dates: start: 20160111, end: 20161107

REACTIONS (2)
  - Drug ineffective [Unknown]
  - Disease progression [Unknown]
